FAERS Safety Report 9854053 (Version 2)
Quarter: 2014Q1

REPORT INFORMATION
  Report Type: Spontaneous
  Country: US (occurrence: US)
  Receive Date: 20140129
  Receipt Date: 20140206
  Transmission Date: 20141002
  Serious: Yes (Death, Hospitalization)
  Sender: FDA-Public Use
  Company Number: US-TMC-CABO-14003953

PATIENT
  Age: 65 Year
  Sex: Male

DRUGS (12)
  1. COMETRIQ [Suspect]
     Indication: PROSTATE CANCER
     Dosage: 100 MG, QD
     Route: 048
     Dates: start: 20140114, end: 20140117
  2. COMETRIQ [Suspect]
     Dosage: 100 MG, QD
     Route: 048
     Dates: start: 20140129, end: 2014
  3. ALLOPURINOL [Concomitant]
  4. ATENOLOL [Concomitant]
  5. PREDNISONE [Concomitant]
  6. VITAMIN D [Concomitant]
  7. CALCIUM [Concomitant]
  8. ZOMETA [Concomitant]
  9. MULTIVITAMIN [Concomitant]
  10. LUPRON [Concomitant]
  11. TYLENOL [Concomitant]
  12. ATIVAN [Concomitant]

REACTIONS (6)
  - Death [Fatal]
  - Loss of consciousness [Unknown]
  - Dyspnoea [Unknown]
  - Abdominal distension [Unknown]
  - Polyp [Unknown]
  - Off label use [Unknown]
